FAERS Safety Report 9333406 (Version 1)
Quarter: 2013Q2

REPORT INFORMATION
  Report Type: Spontaneous
  Country: US (occurrence: US)
  Receive Date: 20130606
  Receipt Date: 20130606
  Transmission Date: 20140414
  Serious: No
  Sender: FDA-Public Use
  Company Number: US-GLAXOSMITHKLINE-A0996689A

PATIENT
  Age: 78 Year
  Sex: Female

DRUGS (3)
  1. LAMICTAL [Suspect]
     Indication: DEPRESSION
     Route: 048
     Dates: start: 201206, end: 201209
  2. LAMOTRIGINE [Suspect]
     Indication: DEPRESSION
     Route: 048
     Dates: start: 201209
  3. HYDROCHLOROTHIAZIDE [Concomitant]

REACTIONS (10)
  - Vision blurred [Not Recovered/Not Resolved]
  - Diplopia [Unknown]
  - Pain [Unknown]
  - Myalgia [Unknown]
  - Malaise [Unknown]
  - Coordination abnormal [Unknown]
  - Confusional state [Unknown]
  - Headache [Unknown]
  - Abdominal pain [Unknown]
  - Fatigue [Unknown]
